FAERS Safety Report 7248248-5 (Version None)
Quarter: 2011Q1

REPORT INFORMATION
  Report Type: 
  Country: None (occurrence: None)
  Receive Date: 20110127
  Receipt Date: 20101215
  Transmission Date: 20110831
  Serious: Yes (Hospitalization)
  Sender: FDA-Public Use
  Company Number: DE-BAYER-2010-000555

PATIENT
  Sex: Female

DRUGS (1)
  1. MIRENA [Suspect]
     Dosage: 20 ?G, CONTINUOUS
     Route: 015
     Dates: start: 20091110, end: 20100803

REACTIONS (3)
  - AMENORRHOEA [None]
  - ABORTION OF ECTOPIC PREGNANCY [None]
  - ABDOMINAL PAIN [None]
